FAERS Safety Report 18580639 (Version 1)
Quarter: 2020Q4

REPORT INFORMATION
  Report Type: Spontaneous
  Country: US (occurrence: US)
  Receive Date: 20201204
  Receipt Date: 20201204
  Transmission Date: 20210114
  Serious: Yes (Hospitalization, Other)
  Sender: FDA-Public Use
  Company Number: US-PURDUE-USA-2020-0177542

PATIENT
  Sex: Female

DRUGS (1)
  1. OXYCONTIN [Suspect]
     Active Substance: OXYCODONE HYDROCHLORIDE
     Indication: SICKLE CELL ANAEMIA
     Dosage: UNK UNK, UNK
     Route: 048

REACTIONS (4)
  - Drug withdrawal syndrome [Unknown]
  - Sickle cell anaemia with crisis [Unknown]
  - Hospitalisation [Unknown]
  - Drug dependence [Unknown]
